FAERS Safety Report 16399246 (Version 2)
Quarter: 2019Q2

REPORT INFORMATION
  Report Type: Report from Study
  Country: CA (occurrence: CA)
  Receive Date: 20190606
  Receipt Date: 20190610
  Transmission Date: 20190711
  Serious: Yes (Other)
  Sender: FDA-Public Use
  Company Number: CA-AMGEN-CANCT2019088343

PATIENT
  Age: 35 Year
  Sex: Female

DRUGS (2)
  1. AIMOVIG [Suspect]
     Active Substance: ERENUMAB-AOOE
     Indication: MIGRAINE
     Dosage: UNK
     Route: 065
     Dates: start: 20190124
  2. BOTOX [Concomitant]
     Active Substance: ONABOTULINUMTOXINA
     Indication: PRODUCT USED FOR UNKNOWN INDICATION
     Dosage: UNK
     Route: 065

REACTIONS (7)
  - Erythema [Unknown]
  - Injection site reaction [Unknown]
  - Drug ineffective [Unknown]
  - Headache [Unknown]
  - Rubber sensitivity [Unknown]
  - Cerebrospinal fluid leakage [Unknown]
  - Concomitant disease aggravated [Unknown]
